FAERS Safety Report 6752633-5 (Version None)
Quarter: 2010Q2

REPORT INFORMATION
  Report Type: 
  Country: None (occurrence: None)
  Receive Date: 20100601
  Receipt Date: 20100601
  Transmission Date: 20101027
  Serious: Yes (Other)
  Sender: FDA-Public Use
  Company Number: None

PATIENT
  Age: 50 Year
  Sex: Female
  Weight: 68.0396 kg

DRUGS (2)
  1. HUMIRA [Suspect]
     Indication: PSORIASIS
     Dosage: 1 SELF INJECTIBLE EVER TWO WEEKS SQ
     Dates: start: 20100126, end: 20100501
  2. HUMIRA [Suspect]
     Indication: PSORIATIC ARTHROPATHY
     Dosage: 1 SELF INJECTIBLE EVER TWO WEEKS SQ
     Dates: start: 20100126, end: 20100501

REACTIONS (7)
  - ARTHRITIS [None]
  - IMPAIRED WORK ABILITY [None]
  - INFECTION [None]
  - NATURAL KILLER T CELL COUNT DECREASED [None]
  - NIGHTMARE [None]
  - PILONIDAL CYST [None]
  - TRIGGER FINGER [None]
